FAERS Safety Report 7244374-5 (Version None)
Quarter: 2011Q1

REPORT INFORMATION
  Report Type: 
  Country: None (occurrence: None)
  Receive Date: 20110125
  Receipt Date: 20110114
  Transmission Date: 20110831
  Serious: Yes (Other)
  Sender: FDA-Public Use
  Company Number: US-AMGEN-USASP2011002544

PATIENT
  Age: 47 Year
  Sex: Female

DRUGS (1)
  1. ENBREL [Suspect]
     Indication: RHEUMATOID ARTHRITIS
     Dosage: 50 MG, QWK
     Dates: start: 20101203, end: 20110103

REACTIONS (4)
  - DYSPNOEA [None]
  - HYPOAESTHESIA ORAL [None]
  - INJECTION SITE ERYTHEMA [None]
  - HYPERSENSITIVITY [None]
